FAERS Safety Report 14276397 (Version 2)
Quarter: 2018Q1

REPORT INFORMATION
  Report Type: Spontaneous
  Country: JP (occurrence: JP)
  Receive Date: 20171212
  Receipt Date: 20180122
  Transmission Date: 20180508
  Serious: Yes (Other)
  Sender: FDA-Public Use
  Company Number: JP-LANNETT COMPANY, INC.-JP-2017LAN001250

PATIENT
  Sex: Female

DRUGS (12)
  1. LITHIUM CARBONATE. [Suspect]
     Active Substance: LITHIUM CARBONATE
     Indication: LOGORRHOEA
     Dosage: 100 MG, UNK
     Route: 048
     Dates: start: 20100510, end: 20120608
  2. ARIPIPRAZOLE. [Suspect]
     Active Substance: ARIPIPRAZOLE
     Indication: HALLUCINATION
     Dosage: 24 MG, UNK
     Route: 048
     Dates: start: 20100402, end: 20100419
  3. ARIPIPRAZOLE. [Suspect]
     Active Substance: ARIPIPRAZOLE
     Dosage: 21 MG, UNK
     Route: 048
     Dates: start: 20100420, end: 20100422
  4. ARIPIPRAZOLE. [Suspect]
     Active Substance: ARIPIPRAZOLE
     Dosage: 21 MG, UNK
     Route: 048
     Dates: start: 20100911, end: 20101015
  5. ABILIFY [Suspect]
     Active Substance: ARIPIPRAZOLE
     Indication: HALLUCINATION
     Dosage: 24 MG, UNK
     Route: 048
     Dates: start: 20100311, end: 20100311
  6. BIPERIDEN HYDROCHLORIDE [Concomitant]
     Active Substance: BIPERIDEN HYDROCHLORIDE
     Indication: TREMOR
     Dosage: 1 MG, UNK
     Route: 048
     Dates: start: 20100625, end: 20120608
  7. ARIPIPRAZOLE. [Suspect]
     Active Substance: ARIPIPRAZOLE
     Dosage: 24 MG, UNK
     Route: 048
     Dates: start: 20100423, end: 20100910
  8. ARIPIPRAZOLE. [Suspect]
     Active Substance: ARIPIPRAZOLE
     Dosage: 15 MG, UNK
     Route: 048
     Dates: start: 20101028, end: 20120608
  9. ARIPIPRAZOLE. [Suspect]
     Active Substance: ARIPIPRAZOLE
     Indication: DELUSIONAL PERCEPTION
     Dosage: 30 MG, UNK
     Route: 048
     Dates: start: 20100312, end: 20100401
  10. ARIPIPRAZOLE. [Suspect]
     Active Substance: ARIPIPRAZOLE
     Dosage: 3 MG, UNK
     Route: 048
     Dates: start: 20120621
  11. ARIPIPRAZOLE. [Suspect]
     Active Substance: ARIPIPRAZOLE
     Dosage: 18 MG, UNK
     Route: 048
     Dates: start: 20101016, end: 20101027
  12. ARIPIPRAZOLE. [Suspect]
     Active Substance: ARIPIPRAZOLE
     Dosage: 6 MG, UNK
     Route: 048
     Dates: start: 20120609, end: 20120620

REACTIONS (1)
  - Abortion [Recovered/Resolved]

NARRATIVE: CASE EVENT DATE: 20120627
